FAERS Safety Report 5274804-X (Version None)
Quarter: 2007Q1

REPORT INFORMATION
  Report Type: 
  Country: None (occurrence: None)
  Receive Date: 20070321
  Receipt Date: 20060828
  Transmission Date: 20070707
  Serious: Yes (Hospitalization)
  Sender: FDA-Public Use
  Company Number: 233057K06USA

PATIENT
  Age: 38 Year
  Sex: Female

DRUGS (19)
  1. REBIF [Suspect]
     Indication: MULTIPLE SCLEROSIS
     Dosage: 44 MCG, 3 IN 1 WEEKS, SUBCUTANEOUS
     Route: 058
     Dates: start: 20031110
  2. ZONEGRAN [Concomitant]
  3. ZANAFLEX [Concomitant]
  4. K-DUR 10 [Concomitant]
  5. BENADRYL [Concomitant]
  6. HYZAAR [Concomitant]
  7. PROMETHEGAN (PROMETHAZINE) [Concomitant]
  8. NEXIUM [Concomitant]
  9. DILANTIN [Concomitant]
  10. ZOCOR [Concomitant]
  11. REGLAN [Concomitant]
  12. DYNACIRC [Concomitant]
  13. TIGAN [Concomitant]
  14. HYDROCODONE (HYDROCODONE) [Concomitant]
  15. SOMA [Concomitant]
  16. BACLOFEN [Concomitant]
  17. XANAX [Concomitant]
  18. COMOBID (BREVA) [Concomitant]
  19. ALBUTEROL (SALBUTAMOL /00139501/) [Concomitant]

REACTIONS (3)
  - HALLUCINATION [None]
  - NAUSEA [None]
  - PARANOIA [None]
